FAERS Safety Report 7659610-0 (Version None)
Quarter: 2011Q3

REPORT INFORMATION
  Report Type: 
  Country: None (occurrence: None)
  Receive Date: 20110805
  Receipt Date: 20110727
  Transmission Date: 20111222
  Serious: Yes (Hospitalization)
  Sender: FDA-Public Use
  Company Number: JP-MERCK-1107USA02996

PATIENT
  Age: 75 Year
  Sex: Male

DRUGS (5)
  1. PROMAC [Suspect]
     Route: 048
     Dates: start: 20100301, end: 20100501
  2. ASPIRIN [Concomitant]
     Route: 048
  3. PEPCID RPD [Suspect]
     Route: 048
     Dates: start: 20100301, end: 20100501
  4. PEPCID RPD [Suspect]
     Route: 048
     Dates: start: 20100701
  5. PLETAL [Concomitant]
     Route: 048
     Dates: start: 20100301, end: 20100501

REACTIONS (1)
  - LIVER DISORDER [None]
